FAERS Safety Report 8135249-8 (Version None)
Quarter: 2012Q1

REPORT INFORMATION
  Report Type: 
  Country: None (occurrence: None)
  Receive Date: 20120214
  Receipt Date: 20120206
  Transmission Date: 20120608
  Serious: Yes (Hospitalization)
  Sender: FDA-Public Use
  Company Number: JP-TEVA-321436ISR

PATIENT
  Age: 64 Year
  Sex: Female
  Weight: 42 kg

DRUGS (2)
  1. CISPLATIN [Suspect]
     Indication: OESOPHAGEAL CARCINOMA
     Dosage: 2 CYCLES
     Route: 065
  2. FLUOROURACIL [Suspect]
     Indication: OESOPHAGEAL CARCINOMA
     Dosage: 700 MG/M2 (2 CYCLES)
     Route: 065

REACTIONS (2)
  - ABSCESS NECK [None]
  - OESOPHAGEAL FISTULA [None]
